FAERS Safety Report 6560130-5 (Version None)
Quarter: 2010Q1

REPORT INFORMATION
  Report Type: 
  Country: None (occurrence: None)
  Receive Date: 20100129
  Receipt Date: 20050111
  Transmission Date: 20100710
  Serious: No
  Sender: FDA-Public Use
  Company Number: US-ALLERGAN-200411094

PATIENT
  Age: 39 Year
  Sex: Female

DRUGS (4)
  1. BOTOX COSMETIC [Suspect]
     Indication: SKIN WRINKLING
     Dosage: 30UNITS, PRN
     Route: 030
     Dates: end: 20041202
  2. RESTYLANE [Suspect]
     Indication: SKIN WRINKLING
     Dosage: 1ML, UNKNOWN
     Route: 065
  3. TOPICAINE GEL 4% [Concomitant]
     Indication: ANAESTHESIA
  4. LIDOCAINE 1% W/ EPINEPHRINE 1:200,000 [Concomitant]
     Indication: ANAESTHESIA

REACTIONS (12)
  - ASTHENIA [None]
  - DYSPNOEA [None]
  - ERYTHEMA [None]
  - FEELING HOT [None]
  - HEADACHE [None]
  - HYPERTENSION [None]
  - HYPOAESTHESIA [None]
  - PARAESTHESIA [None]
  - SENSATION OF HEAVINESS [None]
  - SWOLLEN TONGUE [None]
  - TACHYCARDIA [None]
  - URTICARIA [None]
